FAERS Safety Report 7562133-0 (Version None)
Quarter: 2011Q2

REPORT INFORMATION
  Report Type: 
  Country: None (occurrence: None)
  Receive Date: 20110622
  Receipt Date: 20110615
  Transmission Date: 20111010
  Serious: Yes (Hospitalization)
  Sender: FDA-Public Use
  Company Number: JP-BRISTOL-MYERS SQUIBB COMPANY-15792906

PATIENT
  Age: 64 Year
  Sex: Male

DRUGS (8)
  1. ISONIAZID [Concomitant]
  2. PYDOXAL [Concomitant]
  3. SELBEX [Concomitant]
  4. ORENCIA [Suspect]
     Indication: RHEUMATOID ARTHRITIS
     Dosage: TOTAL INF: 4, LAST INF:25APR11
     Route: 041
     Dates: start: 20110207
  5. LANSOPRAZOLE [Concomitant]
  6. TACROLIMUS [Concomitant]
  7. MEDROL [Concomitant]
     Indication: RHEUMATOID ARTHRITIS
     Route: 048
  8. METHOTREXATE [Suspect]
     Dosage: DISCONTINUED ON 5DEC2010, RESTARTED ON 20 JAN2011- ONG
     Dates: start: 20101125

REACTIONS (2)
  - MACULOPATHY [None]
  - MACULAR HOLE [None]
